FAERS Safety Report 7451886 (Version 2)
Quarter: 2014Q2

REPORT INFORMATION
  Report Type: Spontaneous
  Country: GB (occurrence: GB)
  Receive Date: 20100702
  Receipt Date: 20140408
  Transmission Date: 20141212
  Serious: Yes (Other)
  Sender: FDA-Public Use
  Company Number: PHFR2010GB01056

PATIENT
  Age: 83 Year
  Sex: Male

DRUGS (3)
  1. DICLOFENAC [Suspect]
     Dosage: UNK UKN, UNK
  2. XARELTO [Suspect]
     Indication: HIP ARTHROPLASTY
     Dosage: UNK UKN, UNK
     Dates: start: 2010
  3. ENOXAPARIN [Concomitant]
     Dosage: UNK UKN, UNK
     Dates: start: 2010

REACTIONS (1)
  - Haematemesis [Unknown]
